FAERS Safety Report 6252406-6 (Version None)
Quarter: 2009Q3

REPORT INFORMATION
  Report Type: 
  Country: None (occurrence: None)
  Receive Date: 20090701
  Receipt Date: 20090623
  Transmission Date: 20100115
  Serious: Yes (Hospitalization)
  Sender: FDA-Public Use
  Company Number: FR-WYE-G03903609

PATIENT
  Age: 66 Year
  Sex: Female

DRUGS (4)
  1. EFFEXOR [Suspect]
     Route: 048
     Dates: start: 20090301
  2. INEGY [Concomitant]
     Indication: HYPERCHOLESTEROLAEMIA
     Dosage: UNKNOWN
     Route: 048
  3. PIASCLEDINE [Concomitant]
     Dosage: UNKNOWN
     Route: 048
  4. ABILIFY [Suspect]
     Route: 048
     Dates: start: 20090301

REACTIONS (6)
  - AMNESIA [None]
  - FALL [None]
  - SKIN INJURY [None]
  - SYNCOPE [None]
  - TONGUE BITING [None]
  - URINARY INCONTINENCE [None]
